FAERS Safety Report 10041164 (Version 1)
Quarter: 2014Q1

REPORT INFORMATION
  Report Type: Spontaneous
  Country: US (occurrence: US)
  Receive Date: 20140327
  Receipt Date: 20140327
  Transmission Date: 20141002
  Serious: No
  Sender: FDA-Public Use
  Company Number: US-B.I. PHARMACEUTICALS,INC./RIDGEFIELD-2014-BI-12717BP

PATIENT
  Sex: Male
  Weight: 80 kg

DRUGS (8)
  1. PRADAXA [Suspect]
     Indication: ATRIAL FLUTTER
     Dosage: 150 MG
     Route: 048
     Dates: start: 2012
  2. QUINAPRIL [Concomitant]
     Dosage: 5 MG
     Route: 048
  3. ALLUPURINOL [Concomitant]
     Indication: GOUT
     Dosage: 100 MG
     Route: 048
  4. JANUVIA [Concomitant]
     Indication: TYPE 2 DIABETES MELLITUS
     Dosage: 50 MG
     Route: 048
  5. TOPROL [Concomitant]
     Dosage: 75 MG
     Route: 048
  6. LIPITOR [Concomitant]
     Dosage: 80 MG
     Route: 048
  7. MULTI VITAMINS [Concomitant]
     Route: 048
  8. FAMOTIDINE [Concomitant]
     Dosage: 40 MG
     Route: 048

REACTIONS (2)
  - Diarrhoea [Not Recovered/Not Resolved]
  - Off label use [Unknown]
